FAERS Safety Report 22361018 (Version 1)
Quarter: 2023Q2

REPORT INFORMATION
  Report Type: Spontaneous
  Country: US (occurrence: US)
  Receive Date: 20230524
  Receipt Date: 20230524
  Transmission Date: 20230721
  Serious: No
  Sender: FDA-Public Use
  Company Number: US-PFIZER INC-202300197897

PATIENT
  Age: 28 Year
  Sex: Male
  Weight: 74.84 kg

DRUGS (2)
  1. NURTEC ODT [Suspect]
     Active Substance: RIMEGEPANT SULFATE
     Indication: Migraine
     Dosage: 75 MG (ONCE EVERY TWO DAYS)
     Route: 048
     Dates: start: 20230508
  2. ALLOPURINOL [Concomitant]
     Active Substance: ALLOPURINOL
     Indication: Gout
     Dosage: A PILL EVERY DAY

REACTIONS (1)
  - Therapeutic product effect incomplete [Unknown]
